FAERS Safety Report 4569614-2 (Version None)
Quarter: 2005Q1

REPORT INFORMATION
  Report Type: 
  Country: None (occurrence: None)
  Receive Date: 20050201
  Receipt Date: 20050117
  Transmission Date: 20050727
  Serious: Yes (Death)
  Sender: FDA-Public Use
  Company Number: 9730

PATIENT
  Age: 66 Year
  Sex: Male

DRUGS (3)
  1. PACLITAXEL [Suspect]
     Indication: NON-SMALL CELL LUNG CANCER
     Dosage: 135 MG/M2 IV
     Route: 042
  2. CISPLATIN [Suspect]
     Indication: NON-SMALL CELL LUNG CANCER
     Dosage: 120 MG/M2 IV
     Route: 042
  3. VINORELBINE [Suspect]
     Indication: NON-SMALL CELL LUNG CANCER
     Dosage: 30 MG/M2 IV
     Route: 042

REACTIONS (3)
  - DRUG TOXICITY [None]
  - NEUTROPENIA [None]
  - SEPTIC SHOCK [None]
